FAERS Safety Report 20136681 (Version 1)
Quarter: 2021Q4

REPORT INFORMATION
  Report Type: Spontaneous
  Country: US (occurrence: None)
  Receive Date: 20211201
  Receipt Date: 20211201
  Transmission Date: 20220303
  Serious: Yes (Disabling)
  Sender: FDA-Public Use
  Company Number: None

PATIENT
  Age: 25 Year
  Sex: Male
  Weight: 76.5 kg

DRUGS (4)
  1. MONTELUKAST [Suspect]
     Active Substance: MONTELUKAST SODIUM
     Indication: Rhinitis allergic
     Route: 048
     Dates: start: 20210903, end: 20211127
  2. WELLBUTRIN [Concomitant]
     Active Substance: BUPROPION HYDROCHLORIDE
  3. PROBIOTICS NOS [Concomitant]
     Active Substance: PROBIOTICS NOS
  4. BIOTIN [Concomitant]
     Active Substance: BIOTIN

REACTIONS (4)
  - Sleep disorder [None]
  - Depression [None]
  - Anger [None]
  - Aggression [None]

NARRATIVE: CASE EVENT DATE: 20211001
